FAERS Safety Report 14838141 (Version 1)
Quarter: 2018Q2

REPORT INFORMATION
  Report Type: Spontaneous
  Country: JP (occurrence: JP)
  Receive Date: 20180502
  Receipt Date: 20180502
  Transmission Date: 20180711
  Serious: Yes (Other)
  Sender: FDA-Public Use
  Company Number: JP-MYLANLABS-2018M1029936

PATIENT
  Age: 6 Year
  Sex: Female

DRUGS (6)
  1. METHYLPREDNISOLONE. [Suspect]
     Active Substance: METHYLPREDNISOLONE
     Dosage: UNK
     Route: 065
  2. DEXAMETHASONE. [Suspect]
     Active Substance: DEXAMETHASONE
     Dosage: UNK
     Route: 041
  3. DEXAMETHASONE. [Suspect]
     Active Substance: DEXAMETHASONE
     Dosage: UNK
     Route: 041
  4. METHYLPREDNISOLONE. [Suspect]
     Active Substance: METHYLPREDNISOLONE
     Indication: INFLAMMATION
     Dosage: FOR 4 DAYS
     Route: 065
  5. DEXAMETHASONE. [Suspect]
     Active Substance: DEXAMETHASONE
     Indication: PULMONARY HAEMOSIDEROSIS
     Dosage: 0.8 MG/KG FOR THREE CONSECUTIVE DAYS
     Route: 041
  6. DEXAMETHASONE. [Suspect]
     Active Substance: DEXAMETHASONE
     Indication: PULMONARY HAEMOSIDEROSIS
     Route: 042

REACTIONS (7)
  - Restlessness [Unknown]
  - Irritability [Unknown]
  - Weight increased [Unknown]
  - Inflammation [Unknown]
  - Posterior reversible encephalopathy syndrome [Unknown]
  - Pruritus [Unknown]
  - Pyrexia [Unknown]
